FAERS Safety Report 7828715-3 (Version None)
Quarter: 2011Q4

REPORT INFORMATION
  Report Type: 
  Country: None (occurrence: None)
  Receive Date: 20111020
  Receipt Date: 20111017
  Transmission Date: 20120403
  Serious: Yes (Other)
  Sender: FDA-Public Use
  Company Number: US-ABBOTT-11P-163-0866164-00

PATIENT
  Sex: Female
  Weight: 70.37 kg

DRUGS (2)
  1. HUMIRA [Suspect]
     Route: 058
     Dates: start: 20110921
  2. HUMIRA [Suspect]
     Indication: RHEUMATOID ARTHRITIS
     Route: 058
     Dates: start: 20090101, end: 20110714

REACTIONS (9)
  - DYSPNOEA [None]
  - BREATH SOUNDS ABNORMAL [None]
  - CHEST PAIN [None]
  - PNEUMONIA [None]
  - PLEURISY [None]
  - EMPHYSEMA [None]
  - ARTHRALGIA [None]
  - COUGH [None]
  - ILL-DEFINED DISORDER [None]
